FAERS Safety Report 22602572 (Version 1)
Quarter: 2023Q2

REPORT INFORMATION
  Report Type: Spontaneous
  Country: BR (occurrence: BR)
  Receive Date: 20230614
  Receipt Date: 20230614
  Transmission Date: 20230721
  Serious: Yes (Other)
  Sender: FDA-Public Use
  Company Number: BR-TEVA BRAZIL-2023-BR-2894128

PATIENT
  Age: 68 Year
  Sex: Male

DRUGS (4)
  1. NEOTIGASON [Suspect]
     Active Substance: ACITRETIN
     Indication: Psoriasis
     Dosage: 20 MILLIGRAM DAILY;
     Route: 048
     Dates: start: 202209
  2. AMOXICILLIN [Suspect]
     Active Substance: AMOXICILLIN
     Indication: Product used for unknown indication
     Route: 065
  3. CEPHALEXIN [Suspect]
     Active Substance: CEPHALEXIN
     Indication: Product used for unknown indication
     Route: 065
  4. IBUPROFEN [Suspect]
     Active Substance: IBUPROFEN
     Indication: Product used for unknown indication
     Route: 065

REACTIONS (9)
  - Hepatic function abnormal [Recovering/Resolving]
  - Insomnia [Unknown]
  - Arthritis [Recovering/Resolving]
  - Gait disturbance [Recovering/Resolving]
  - Paraesthesia [Not Recovered/Not Resolved]
  - Gingivitis [Recovered/Resolved]
  - Trigger finger [Not Recovered/Not Resolved]
  - Arthralgia [Recovering/Resolving]
  - Tendonitis [Not Recovered/Not Resolved]

NARRATIVE: CASE EVENT DATE: 20221201
